FAERS Safety Report 6933858-2 (Version None)
Quarter: 2010Q3

REPORT INFORMATION
  Report Type: 
  Country: None (occurrence: None)
  Receive Date: 20100820
  Receipt Date: 20100812
  Transmission Date: 20110219
  Serious: Yes (Death)
  Sender: FDA-Public Use
  Company Number: US-ROCHE-699447

PATIENT
  Sex: Female
  Weight: 60 kg

DRUGS (2)
  1. CAPECITABINE [Suspect]
     Indication: PANCREATIC CARCINOMA METASTATIC
     Route: 048
     Dates: start: 20091106, end: 20091128
  2. PERCOCET [Concomitant]
     Indication: PAIN

REACTIONS (1)
  - MALIGNANT NEOPLASM PROGRESSION [None]
